FAERS Safety Report 24670253 (Version 1)
Quarter: 2024Q4

REPORT INFORMATION
  Report Type: Spontaneous
  Country: KR (occurrence: KR)
  Receive Date: 20241127
  Receipt Date: 20241127
  Transmission Date: 20250114
  Serious: Yes (Other)
  Sender: GLAND PHARMA LTD
  Company Number: KR-GLANDPHARMA-KR-2024GLNLIT01017

PATIENT
  Age: 60 Year
  Sex: Male

DRUGS (9)
  1. PACLITAXEL [Suspect]
     Active Substance: PACLITAXEL
     Indication: Lung adenocarcinoma stage III
     Route: 065
  2. CISPLATIN [Suspect]
     Active Substance: CISPLATIN
     Indication: Lung adenocarcinoma stage III
     Route: 065
  3. CISPLATIN [Suspect]
     Active Substance: CISPLATIN
     Route: 065
  4. CRIZOTINIB [Suspect]
     Active Substance: CRIZOTINIB
     Indication: Lung adenocarcinoma stage III
     Route: 065
  5. PEMETREXED [Suspect]
     Active Substance: PEMETREXED
     Indication: Lung adenocarcinoma stage III
     Route: 065
  6. PREDNISOLONE [Suspect]
     Active Substance: PREDNISOLONE
     Indication: Radiation pneumonitis
     Route: 065
  7. PREDNISOLONE [Suspect]
     Active Substance: PREDNISOLONE
     Route: 065
  8. BECLOMETHASONE DIPROPIONATE [Suspect]
     Active Substance: BECLOMETHASONE DIPROPIONATE
     Indication: Chronic obstructive pulmonary disease
     Route: 065
  9. METHYLPREDNISOLONE [Suspect]
     Active Substance: METHYLPREDNISOLONE
     Indication: Chronic obstructive pulmonary disease
     Route: 065

REACTIONS (3)
  - Tracheobronchitis viral [Recovered/Resolved]
  - Immunodeficiency [Recovered/Resolved]
  - Drug ineffective for unapproved indication [Unknown]
